FAERS Safety Report 23498748 (Version 1)
Quarter: 2024Q1

REPORT INFORMATION
  Report Type: Spontaneous
  Country: US (occurrence: US)
  Receive Date: 20240208
  Receipt Date: 20240208
  Transmission Date: 20240409
  Serious: Yes (Other)
  Sender: FDA-Public Use
  Company Number: US-VIIV HEALTHCARE LIMITED-US2024014469

PATIENT

DRUGS (12)
  1. TIVICAY [Suspect]
     Active Substance: DOLUTEGRAVIR SODIUM
     Indication: Product used for unknown indication
     Dosage: 1 DF, QD
     Route: 048
  2. ELIQUIS [Suspect]
     Active Substance: APIXABAN
     Indication: Product used for unknown indication
     Dosage: 2.5 MG
     Route: 048
  3. DILTIAZEM HYDROCHLORIDE [Suspect]
     Active Substance: DILTIAZEM HYDROCHLORIDE
     Indication: Product used for unknown indication
     Dosage: 1 DF, QD
     Route: 048
  4. AMIODARONE HYDROCHLORIDE [Suspect]
     Active Substance: AMIODARONE HYDROCHLORIDE
     Indication: Product used for unknown indication
     Dosage: 1 DF, BID
     Route: 048
  5. FERROUS SULFATE [Suspect]
     Active Substance: FERROUS SULFATE
     Indication: Product used for unknown indication
     Dosage: 1 DF, QD, 325
     Route: 048
  6. DESCOVY [Suspect]
     Active Substance: EMTRICITABINE\TENOFOVIR ALAFENAMIDE FUMARATE
     Indication: Product used for unknown indication
     Dosage: 1 DF, QD, 200-250 MG
     Route: 048
  7. LEVOTHYROXINE SODIUM [Suspect]
     Active Substance: LEVOTHYROXINE SODIUM
     Indication: Product used for unknown indication
     Dosage: 1 DF, QD, ON EMPTY STOMACH
     Route: 048
  8. LEVAQUIN [Suspect]
     Active Substance: LEVOFLOXACIN
     Indication: Product used for unknown indication
     Dosage: 1 DF, QD
     Route: 048
  9. COVID-19 VACCINE [Concomitant]
     Indication: COVID-19
     Dosage: UNK
     Dates: start: 20210413
  10. COVID-19 VACCINE [Concomitant]
     Dosage: UNK
     Dates: start: 20210511
  11. PNEUMOCOCCAL VACCINE POLYVALENT NOS [Concomitant]
     Active Substance: PNEUMOCOCCAL VACCINE POLYVALENT
     Indication: Pneumonia
     Dosage: UNK
  12. INFLUENZA VIRUS VACCINE [Concomitant]
     Active Substance: INFLUENZA VIRUS VACCINE
     Indication: Product used for unknown indication
     Dosage: UNK

REACTIONS (18)
  - Adenocarcinoma gastric [Unknown]
  - Atrial fibrillation [Unknown]
  - Hypothyroidism [Unknown]
  - Immunodeficiency [Unknown]
  - Pneumococcal bacteraemia [Recovered/Resolved]
  - Pneumonia pneumococcal [Recovered/Resolved]
  - Pneumococcal sepsis [Recovered/Resolved]
  - Pneumonia [Recovered/Resolved]
  - Cough [Recovering/Resolving]
  - Pyrexia [Recovering/Resolving]
  - Sputum discoloured [Recovering/Resolving]
  - Thyroid mass [Unknown]
  - Oedema peripheral [Recovering/Resolving]
  - Essential hypertension [Unknown]
  - Blood glucose increased [Unknown]
  - Blood chloride increased [Unknown]
  - Blood immunoglobulin A increased [Unknown]
  - Sinusitis [Recovered/Resolved]

NARRATIVE: CASE EVENT DATE: 20231207
